FAERS Safety Report 6822494-4 (Version None)
Quarter: 2010Q3

REPORT INFORMATION
  Report Type: 
  Country: None (occurrence: None)
  Receive Date: 20100708
  Receipt Date: 20100701
  Transmission Date: 20110219
  Serious: Yes (Hospitalization, Other)
  Sender: FDA-Public Use
  Company Number: BR-SANOFI-AVENTIS-2010SA030383

PATIENT
  Sex: Female
  Weight: 108 kg

DRUGS (13)
  1. LANTUS [Suspect]
     Indication: TYPE 2 DIABETES MELLITUS
     Route: 058
     Dates: start: 20050101
  2. LANTUS [Suspect]
     Route: 058
     Dates: start: 20050101
  3. OPTIPEN [Suspect]
     Dates: start: 20050101
  4. AUTOPEN 24 [Suspect]
  5. ENALAPRIL MALEATE [Concomitant]
     Indication: BLOOD PRESSURE
     Route: 048
  6. ATENOLOL [Concomitant]
     Route: 048
  7. DIGESAN [Concomitant]
     Route: 048
  8. SUCRALFATE [Concomitant]
     Route: 048
  9. CARMELLOSE SODIUM [Concomitant]
  10. PARIET [Concomitant]
     Indication: GASTRIC DISORDER
     Route: 048
  11. LORAZEPAM [Concomitant]
     Route: 048
  12. QUADRIDERM [Concomitant]
  13. HUMALOG [Concomitant]
     Indication: TYPE 2 DIABETES MELLITUS
     Route: 058

REACTIONS (10)
  - BLOOD PRESSURE ABNORMAL [None]
  - CATARACT [None]
  - DIARRHOEA [None]
  - FALL [None]
  - GASTRIC POLYPS [None]
  - HAEMORRHAGE [None]
  - INCREASED APPETITE [None]
  - INSULIN RESISTANCE [None]
  - PATELLA FRACTURE [None]
  - VOMITING [None]
